FAERS Safety Report 5884569-6 (Version None)
Quarter: 2008Q3

REPORT INFORMATION
  Report Type: 
  Country: None (occurrence: None)
  Receive Date: 20080916
  Receipt Date: 20080911
  Transmission Date: 20090109
  Serious: Yes (Death, Hospitalization)
  Sender: FDA-Public Use
  Company Number: FR-CELGENEUS-056-C5013-08081457

PATIENT
  Sex: Female
  Weight: 57 kg

DRUGS (21)
  1. REVLIMID [Suspect]
     Indication: T-CELL LYMPHOMA
     Route: 048
     Dates: start: 20080825, end: 20080827
  2. CODEINE SUL TAB [Concomitant]
     Indication: COUGH
     Route: 048
     Dates: start: 20080821, end: 20080826
  3. BACTRIM [Concomitant]
     Indication: ANTIBIOTIC PROPHYLAXIS
     Route: 048
     Dates: end: 20080828
  4. LEDERFOLINE [Concomitant]
     Indication: HAEMATOTOXICITY
     Route: 048
     Dates: end: 20080826
  5. ROVALCYTE [Concomitant]
     Indication: CYTOMEGALOVIRUS CHORIORETINITIS
     Route: 048
     Dates: start: 20080812, end: 20080825
  6. ROVALCYTE [Concomitant]
     Route: 048
     Dates: start: 20080826, end: 20080828
  7. DINACODE [Concomitant]
     Indication: INCREASED BRONCHIAL SECRETION
     Route: 048
     Dates: start: 20080812, end: 20080827
  8. POLARAMINE [Concomitant]
     Indication: RHINITIS
     Route: 048
     Dates: end: 20080825
  9. ATARAX [Concomitant]
     Indication: ANXIETY
     Route: 048
     Dates: start: 20080823, end: 20080824
  10. LEXOMIL [Concomitant]
     Indication: ANXIETY
     Route: 048
     Dates: start: 20080824, end: 20080824
  11. DIGOXIN [Concomitant]
     Indication: ARRHYTHMIA
     Route: 051
     Dates: start: 20080825, end: 20080826
  12. LOVENOX [Concomitant]
     Indication: THROMBOSIS PROPHYLAXIS
     Dosage: 0.4ML
     Route: 051
     Dates: start: 20080825, end: 20080827
  13. DUPHALAC [Concomitant]
     Indication: CONSTIPATION
     Route: 048
     Dates: start: 20080826, end: 20080826
  14. LASIX [Concomitant]
     Indication: OEDEMA
     Route: 048
     Dates: start: 20080827, end: 20080827
  15. PERFALGAN [Concomitant]
     Indication: PAIN
     Dosage: 1 BOTTLE
     Route: 051
     Dates: start: 20080827, end: 20080827
  16. CORDARONE [Concomitant]
     Indication: ARRHYTHMIA
     Route: 048
     Dates: start: 20080826, end: 20080827
  17. EDUCTYL [Concomitant]
     Indication: CONSTIPATION
     Route: 054
     Dates: start: 20080826, end: 20080826
  18. VITAMIN K TAB [Concomitant]
     Indication: HAEMORRHAGE PROPHYLAXIS
     Route: 048
     Dates: start: 20080826, end: 20080826
  19. NORADRENALINE [Concomitant]
     Indication: CIRCULATORY COLLAPSE
     Route: 051
     Dates: start: 20080827, end: 20080828
  20. TAZOCILLINE [Concomitant]
     Indication: INFECTION
     Route: 051
     Dates: start: 20080826, end: 20080827
  21. MORPHINE [Concomitant]
     Indication: PAIN
     Route: 051
     Dates: start: 20080828, end: 20080829

REACTIONS (4)
  - ACUTE RESPIRATORY DISTRESS SYNDROME [None]
  - BRADYCARDIA [None]
  - CARDIAC ARREST [None]
  - DISEASE PROGRESSION [None]
